FAERS Safety Report 6274159-8 (Version None)
Quarter: 2009Q3

REPORT INFORMATION
  Report Type: 
  Country: None (occurrence: None)
  Receive Date: 20090720
  Receipt Date: 20090708
  Transmission Date: 20100115
  Serious: Yes (Other)
  Sender: FDA-Public Use
  Company Number: AT-PFIZER INC-2009238619

PATIENT
  Age: 59 Year

DRUGS (5)
  1. VIAGRA [Suspect]
     Indication: ERECTILE DYSFUNCTION
     Dosage: 50 MG, UNK
     Route: 048
  2. GLUCOPHAGE [Concomitant]
  3. AMARYL [Concomitant]
     Dosage: UNK
  4. GALENIC /HYDROCHLOROTHIAZIDE/VALSARTAN/ [Concomitant]
  5. ASPIRIN [Concomitant]

REACTIONS (1)
  - RETINAL VASCULAR THROMBOSIS [None]
